FAERS Safety Report 25704627 (Version 1)
Quarter: 2025Q3

REPORT INFORMATION
  Report Type: Spontaneous
  Country: EU (occurrence: EU)
  Receive Date: 20250820
  Receipt Date: 20250820
  Transmission Date: 20251021
  Serious: Yes (Disabling)
  Sender: ABBVIE
  Company Number: None

PATIENT
  Sex: Male
  Weight: 100 kg

DRUGS (4)
  1. ACULAR [Suspect]
     Active Substance: KETOROLAC TROMETHAMINE
     Indication: Lens disorder
     Route: 047
     Dates: start: 20250731, end: 20250804
  2. CAPECITABINE [Concomitant]
     Active Substance: CAPECITABINE
     Indication: Neoplasm malignant
     Dates: start: 20250405, end: 20250628
  3. OXALIPLATIN [Concomitant]
     Active Substance: OXALIPLATIN
     Indication: Neoplasm malignant
     Dates: start: 20250404, end: 20250613
  4. OMEPRAZOLE [Concomitant]
     Active Substance: OMEPRAZOLE
     Indication: Neoplasm malignant
     Route: 048
     Dates: start: 20250405, end: 20250628

REACTIONS (4)
  - Visual acuity reduced [Not Recovered/Not Resolved]
  - Visual impairment [Not Recovered/Not Resolved]
  - Eye pain [Recovered/Resolved]
  - Vision blurred [Not Recovered/Not Resolved]

NARRATIVE: CASE EVENT DATE: 20250731
